FAERS Safety Report 6434972-0 (Version None)
Quarter: 2009Q4

REPORT INFORMATION
  Report Type: 
  Country: None (occurrence: None)
  Receive Date: 20091110
  Receipt Date: 20091030
  Transmission Date: 20100525
  Serious: Yes (Other)
  Sender: FDA-Public Use
  Company Number: US-JNJFOC-20091002311

PATIENT
  Sex: Male
  Weight: 89.81 kg

DRUGS (5)
  1. TAPENTADOL HYDROCHLORIDE [Suspect]
     Indication: PAIN
     Route: 048
  2. CYMBALTA [Concomitant]
     Indication: DEPRESSION
  3. DURAGESIC-100 [Concomitant]
     Indication: PAIN
  4. NEXIUM [Concomitant]
  5. MEMANTINE HCL [Concomitant]
     Indication: PAIN

REACTIONS (4)
  - CHEST DISCOMFORT [None]
  - CHEST PAIN [None]
  - HALLUCINATION [None]
  - THROAT TIGHTNESS [None]
